FAERS Safety Report 4313877-5 (Version None)
Quarter: 2004Q1

REPORT INFORMATION
  Report Type: 
  Country: None (occurrence: None)
  Receive Date: 20040305
  Receipt Date: 20031121
  Transmission Date: 20041129
  Serious: Yes (Hospitalization, Other)
  Sender: FDA-Public Use
  Company Number: USA-2003-0011248

PATIENT
  Age: 63 Year
  Sex: Male

DRUGS (9)
  1. CHIROCAINE [Suspect]
     Indication: ANALGESIC THERAPY
     Dosage: EPIDURAL
     Route: 008
     Dates: start: 20031118, end: 20031118
  2. CLONIDINE [Concomitant]
  3. METHYLPREDNISOLONE [Concomitant]
  4. MIDAZOLAM HCL [Concomitant]
  5. TRAMADOL HCL [Concomitant]
  6. AMITRIPTYLINE HCL [Concomitant]
  7. GLICLAZIDE (GLICLAZIDE) [Concomitant]
  8. CIMETIDINE [Concomitant]
  9. SIMVASTATIN [Concomitant]

REACTIONS (2)
  - ANAESTHETIC COMPLICATION NEUROLOGICAL [None]
  - HYPOTENSION [None]
